FAERS Safety Report 9063601 (Version 1)
Quarter: 2013Q1

REPORT INFORMATION
  Report Type: Report from Study
  Country: US (occurrence: US)
  Receive Date: 20130131
  Receipt Date: 20130131
  Transmission Date: 20140127
  Serious: No
  Sender: FDA-Public Use
  Company Number: US-ABBOTT-12P-163-1007933-00

PATIENT
  Age: 50 Year
  Sex: Female

DRUGS (4)
  1. HUMIRA [Suspect]
     Indication: CROHN^S DISEASE
     Route: 058
     Dates: start: 20120817
  2. DIOVAN [Concomitant]
     Indication: GASTROOESOPHAGEAL REFLUX DISEASE
     Dosage: 160MG DAILY
     Route: 048
  3. ASACOL [Concomitant]
     Indication: HYPERTENSION
     Route: 048
  4. NEXIUM [Concomitant]
     Indication: CROHN^S DISEASE
     Dosage: 40MG DAILY
     Route: 048

REACTIONS (1)
  - Somnolence [Recovered/Resolved]
